FAERS Safety Report 6504832-5 (Version None)
Quarter: 2009Q4

REPORT INFORMATION
  Report Type: 
  Country: None (occurrence: None)
  Receive Date: 20091218
  Receipt Date: 20091204
  Transmission Date: 20100525
  Serious: No
  Sender: FDA-Public Use
  Company Number: US-BAYER-200940016NA

PATIENT
  Age: 71 Year
  Sex: Female

DRUGS (1)
  1. BETASERON [Suspect]
     Indication: PROGRESSIVE MULTIPLE SCLEROSIS
     Dosage: 2-3 YEARS
     Route: 058
     Dates: end: 20030101

REACTIONS (1)
  - DRUG INEFFECTIVE [None]
